FAERS Safety Report 8456939-3 (Version None)
Quarter: 2012Q2

REPORT INFORMATION
  Report Type: 
  Country: None (occurrence: None)
  Receive Date: 20120323
  Receipt Date: 20111123
  Transmission Date: 20120825
  Serious: Yes (Other)
  Sender: FDA-Public Use
  Company Number: 163-21880-11092117

PATIENT
  Age: 75 Year
  Sex: Female
  Weight: 107.5025 kg

DRUGS (3)
  1. REVLIMID [Suspect]
     Indication: MYELODYSPLASTIC SYNDROME
     Dosage: 5 MG, 1 IN 1 D, PO ; 10 MG, 1 IN 1 D, PO
     Route: 048
     Dates: start: 20110531, end: 20110101
  2. REVLIMID [Suspect]
     Indication: MYELODYSPLASTIC SYNDROME
     Dosage: 5 MG, 1 IN 1 D, PO ; 10 MG, 1 IN 1 D, PO
     Route: 048
     Dates: start: 20110601
  3. PROCRIT [Concomitant]

REACTIONS (5)
  - PLATELET COUNT DECREASED [None]
  - MYELODYSPLASTIC SYNDROME [None]
  - PULMONARY EMBOLISM [None]
  - DISEASE PROGRESSION [None]
  - DEEP VEIN THROMBOSIS [None]
